FAERS Safety Report 12692603 (Version 1)
Quarter: 2016Q3

REPORT INFORMATION
  Report Type: Report from Study
  Country: US (occurrence: US)
  Receive Date: 20160829
  Receipt Date: 20160829
  Transmission Date: 20161109
  Serious: Yes (Hospitalization, Other)
  Sender: FDA-Public Use
  Company Number: US-ALEXION PHARMACEUTICALS INC-A201606165

PATIENT
  Sex: Female

DRUGS (1)
  1. SOLIRIS [Suspect]
     Active Substance: ECULIZUMAB
     Indication: HAEMOLYTIC URAEMIC SYNDROME
     Route: 042

REACTIONS (5)
  - Haemolytic uraemic syndrome [Not Recovered/Not Resolved]
  - Asthenia [Unknown]
  - Condition aggravated [Not Recovered/Not Resolved]
  - Staphylococcal infection [Unknown]
  - Endocarditis [Unknown]

NARRATIVE: CASE EVENT DATE: 20160810
